FAERS Safety Report 23695579 (Version 2)
Quarter: 2024Q2

REPORT INFORMATION
  Report Type: Spontaneous
  Country: IT (occurrence: IT)
  Receive Date: 20240402
  Receipt Date: 20240414
  Transmission Date: 20240716
  Serious: Yes (Disabling, Other)
  Sender: FDA-Public Use
  Company Number: IT-MINISAL02-976373

PATIENT
  Age: 79 Day
  Sex: Female
  Weight: 60 kg

DRUGS (1)
  1. MEMANTINE [Suspect]
     Active Substance: MEMANTINE
     Indication: Dementia Alzheimer^s type
     Dosage: UNK
     Route: 048
     Dates: start: 20100101, end: 20230913

REACTIONS (2)
  - Erythema [Recovered/Resolved]
  - Paramnesia [Recovered/Resolved]

NARRATIVE: CASE EVENT DATE: 20100101
